FAERS Safety Report 4506509-4 (Version None)
Quarter: 2004Q4

REPORT INFORMATION
  Report Type: 
  Country: None (occurrence: None)
  Receive Date: 20041122
  Receipt Date: 20041104
  Transmission Date: 20050328
  Serious: Yes (Hospitalization, Other)
  Sender: FDA-Public Use
  Company Number: BR-ABBOTT-04P-020-0279806-00

PATIENT
  Age: 47 Year
  Sex: Female

DRUGS (3)
  1. KALETRA [Suspect]
     Indication: HIV INFECTION
     Route: 048
     Dates: start: 20041001
  2. LAMIVUDINE [Concomitant]
     Indication: HIV INFECTION
     Route: 048
     Dates: start: 20041001
  3. TENOFOVIR [Concomitant]
     Indication: HIV INFECTION
     Route: 048
     Dates: start: 20041001

REACTIONS (8)
  - ARTERIAL OCCLUSIVE DISEASE [None]
  - CYANOSIS [None]
  - INTERMITTENT CLAUDICATION [None]
  - MIGRAINE [None]
  - OEDEMA PERIPHERAL [None]
  - PAIN IN EXTREMITY [None]
  - PULSE ABSENT [None]
  - URINARY TRACT INFECTION [None]
